FAERS Safety Report 25963647 (Version 1)
Quarter: 2025Q4

REPORT INFORMATION
  Report Type: Spontaneous
  Country: US (occurrence: US)
  Receive Date: 20251027
  Receipt Date: 20251027
  Transmission Date: 20260117
  Serious: Yes (Other)
  Sender: HIKMA
  Company Number: US-HIKMA PHARMACEUTICALS USA INC.-US-H14001-25-11318

PATIENT
  Sex: Female

DRUGS (1)
  1. BUPRENORPHINE AND NALOXONE [Suspect]
     Active Substance: BUPRENORPHINE HYDROCHLORIDE\NALOXONE HYDROCHLORIDE
     Indication: Epilepsy
     Dosage: 1 DOSAGE FORM
     Route: 065

REACTIONS (10)
  - Chest pain [Unknown]
  - Hypertension [Unknown]
  - Bruxism [Unknown]
  - Hypoaesthesia [Unknown]
  - Headache [Unknown]
  - Malaise [Unknown]
  - Vision blurred [Unknown]
  - Anxiety [Unknown]
  - Erythema [Unknown]
  - Suspected product tampering [Unknown]
